FAERS Safety Report 13814139 (Version 1)
Quarter: 2017Q3

REPORT INFORMATION
  Report Type: Other
  Country: SI (occurrence: SI)
  Receive Date: 20170731
  Receipt Date: 20170731
  Transmission Date: 20171127
  Serious: Yes (Other)
  Sender: FDA-Public Use
  Company Number: SI-ORCHID HEALTHCARE-2023947

PATIENT
  Age: 7 Year
  Sex: Male

DRUGS (2)
  1. PANTOPRAZOLE SODIUM. [Suspect]
     Active Substance: PANTOPRAZOLE SODIUM
     Indication: GASTROOESOPHAGEAL REFLUX DISEASE
     Route: 065
  2. ESOMEPRAZOLE [Suspect]
     Active Substance: ESOMEPRAZOLE
     Route: 065

REACTIONS (1)
  - Urinary incontinence [Recovered/Resolved]
